FAERS Safety Report 15580482 (Version 5)
Quarter: 2019Q4

REPORT INFORMATION
  Report Type: Report from Study
  Country: US (occurrence: US)
  Receive Date: 20181102
  Receipt Date: 20191112
  Transmission Date: 20200122
  Serious: Yes (Hospitalization, Other)
  Sender: FDA-Public Use
  Company Number: US-ACTELION-A-NJ2018-181217

PATIENT
  Age: 61 Year
  Sex: Male
  Weight: 79.37 kg

DRUGS (2)
  1. ORENITRAM [Concomitant]
     Active Substance: TREPROSTINIL
  2. OPSUMIT [Suspect]
     Active Substance: MACITENTAN
     Indication: PULMONARY HYPERTENSION
     Dosage: 10 MG, QD
     Route: 048

REACTIONS (11)
  - Cerebral haemorrhage [Unknown]
  - Road traffic accident [Unknown]
  - Brain oedema [Unknown]
  - Coma [Recovered/Resolved]
  - Pulmonary oedema [Unknown]
  - Anxiety [Unknown]
  - Ankle fracture [Unknown]
  - Pneumonia [Unknown]
  - Muscular weakness [Unknown]
  - Cerebrovascular accident [Unknown]
  - Dyspnoea [Unknown]

NARRATIVE: CASE EVENT DATE: 20181023
